FAERS Safety Report 5535222-X (Version None)
Quarter: 2007Q4

REPORT INFORMATION
  Report Type: 
  Country: None (occurrence: None)
  Receive Date: 20071206
  Receipt Date: 20071126
  Transmission Date: 20080405
  Serious: Yes (Other)
  Sender: FDA-Public Use
  Company Number: JP-BRISTOL-MYERS SQUIBB COMPANY-14001168

PATIENT
  Age: 57 Year
  Sex: Female

DRUGS (6)
  1. ABILIFY [Suspect]
     Indication: SCHIZOPHRENIA
     Dosage: (6MG)12JUL07-01AUG07(3WEEKS);(12MG)2AUG07-06AUG07(5 DAYS)
     Route: 048
     Dates: start: 20070712, end: 20070806
  2. MAGNESIUM OXIDE [Concomitant]
     Route: 048
     Dates: start: 20070223
  3. BROTIZOLAM [Concomitant]
     Indication: SCHIZOPHRENIA
     Route: 048
     Dates: start: 20070314
  4. BIPERIDEN HYDROCHLORIDE TAB [Concomitant]
     Indication: PROPHYLAXIS
     Route: 048
     Dates: start: 20070606
  5. FAMOTIDINE [Concomitant]
     Route: 048
     Dates: start: 20070613
  6. RISPERIDONE [Concomitant]
     Indication: SCHIZOPHRENIA
     Dosage: POSTMEDICATION-3MG/DAY;ORAL;(07AUG07-CONTINUING)
     Route: 048
     Dates: start: 20070606, end: 20070711

REACTIONS (1)
  - PARANOIA [None]
